FAERS Safety Report 17386627 (Version 4)
Quarter: 2020Q2

REPORT INFORMATION
  Report Type: Report from Study
  Country: US (occurrence: US)
  Receive Date: 20200206
  Receipt Date: 20200407
  Transmission Date: 20200713
  Serious: Yes (Other)
  Sender: FDA-Public Use
  Company Number: US-AMGEN-USASL2020016829

PATIENT
  Age: 71 Year
  Sex: Male

DRUGS (4)
  1. EPIPEN [Concomitant]
     Active Substance: EPINEPHRINE
  2. REPATHA [Suspect]
     Active Substance: EVOLOCUMAB
     Indication: HYPERLIPIDAEMIA
     Dosage: UNK
     Route: 065
  3. REPATHA [Suspect]
     Active Substance: EVOLOCUMAB
     Dosage: UNK
     Route: 065
  4. REPATHA [Suspect]
     Active Substance: EVOLOCUMAB
     Indication: HYPERCHOLESTEROLAEMIA
     Dosage: 140 MILLIGRAM, Q2WK
     Route: 065
     Dates: start: 2018

REACTIONS (12)
  - Immobile [Unknown]
  - Injection site pain [Unknown]
  - Abdominal distension [Unknown]
  - Device issue [Unknown]
  - Incorrect dose administered by device [Unknown]
  - Vital functions abnormal [Unknown]
  - Oxygen consumption decreased [Unknown]
  - Ear infection [Unknown]
  - Ill-defined disorder [Unknown]
  - Injection site haemorrhage [Unknown]
  - Injection site urticaria [Unknown]
  - Weight decreased [Unknown]

NARRATIVE: CASE EVENT DATE: 20191231
